FAERS Safety Report 8544249-5 (Version None)
Quarter: 2012Q3

REPORT INFORMATION
  Report Type: 
  Country: None (occurrence: None)
  Receive Date: 20120727
  Receipt Date: 20120718
  Transmission Date: 20120928
  Serious: Yes (Other)
  Sender: FDA-Public Use
  Company Number: US-ABBOTT-12P-163-0957941-00

PATIENT
  Age: 42 Year
  Sex: Female

DRUGS (20)
  1. SAVELLA [Concomitant]
     Indication: FIBROMYALGIA
  2. VITAMIN D [Concomitant]
     Indication: VITAMIN SUPPLEMENTATION
     Dosage: DAILY
  3. MELATONIN [Concomitant]
     Indication: INSOMNIA
     Dosage: AT BEDTIME
  4. SEROQUEL [Concomitant]
     Indication: INSOMNIA
     Dosage: AT HOUR OF SLEEP
  5. METHOTREXATE [Concomitant]
     Indication: PRODUCT USED FOR UNKNOWN INDICATION
  6. PERCOCET [Concomitant]
     Indication: FIBROMYALGIA
  7. OXYCONTIN [Concomitant]
     Indication: RHEUMATOID ARTHRITIS
  8. OXYCONTIN [Concomitant]
     Indication: FIBROMYALGIA
  9. TOPAMAX [Concomitant]
     Indication: MIGRAINE PROPHYLAXIS
     Dosage: AT HOUR OF SLEEP
  10. MULTI-VITAMIN [Concomitant]
     Indication: PRODUCT USED FOR UNKNOWN INDICATION
  11. CRESTOR [Concomitant]
     Indication: BLOOD CHOLESTEROL INCREASED
     Dosage: 20 MG DAILY
  12. PERCOCET [Concomitant]
     Indication: PAIN
  13. NABUMETONE [Concomitant]
     Indication: ANTIINFLAMMATORY THERAPY
  14. OXYCONTIN [Concomitant]
     Indication: PAIN
  15. WELLBUTRIN SR [Concomitant]
     Indication: DEPRESSION
  16. L METHYLFOLATE [Concomitant]
     Indication: BLOOD FOLATE ABNORMAL
     Dosage: 15 MG DAILY
  17. CYCLOBENAZPRINE [Concomitant]
     Indication: MUSCLE RELAXANT THERAPY
     Dosage: AT BEDTIME
  18. HUMIRA [Suspect]
     Indication: RHEUMATOID ARTHRITIS
     Dates: start: 20101001
  19. ORPHENADRINE CITRATE [Concomitant]
     Indication: MUSCLE RELAXANT THERAPY
     Dosage: AT BEDTIME
  20. PERCOCET [Concomitant]
     Indication: ARTHRALGIA
     Dosage: 10/325 MG
     Dates: start: 20120601

REACTIONS (13)
  - MULTIPLE SCLEROSIS [None]
  - ALANINE AMINOTRANSFERASE INCREASED [None]
  - WALKING AID USER [None]
  - CEREBRAL CYST [None]
  - HEADACHE [None]
  - INTERVERTEBRAL DISC PROTRUSION [None]
  - HERPES ZOSTER [None]
  - CARDIAC DISORDER [None]
  - PRURITUS [None]
  - ASPARTATE AMINOTRANSFERASE INCREASED [None]
  - CEREBRAL ARTERY EMBOLISM [None]
  - ARTHRALGIA [None]
  - PAIN [None]
